FAERS Safety Report 7970777-7 (Version None)
Quarter: 2011Q4

REPORT INFORMATION
  Report Type: 
  Country: None (occurrence: None)
  Receive Date: 20111212
  Receipt Date: 20111201
  Transmission Date: 20120403
  Serious: Yes (Other)
  Sender: FDA-Public Use
  Company Number: AU-JNJFOC-20111203561

PATIENT
  Age: 46 Year
  Sex: Female

DRUGS (4)
  1. LIPITOR [Concomitant]
     Route: 065
  2. CITALOPRAM HYDROBROMIDE [Concomitant]
     Route: 065
  3. ZYRTEC [Suspect]
     Route: 048
  4. ZYRTEC [Suspect]
     Indication: SINUS CONGESTION
     Dosage: FOR 6 OR 7 YEARS
     Route: 048

REACTIONS (1)
  - DRUG WITHDRAWAL SYNDROME [None]
